FAERS Safety Report 10199769 (Version 1)
Quarter: 2014Q2

REPORT INFORMATION
  Report Type: Spontaneous
  Country: US (occurrence: US)
  Receive Date: 20140527
  Receipt Date: 20140527
  Transmission Date: 20141212
  Serious: No
  Sender: FDA-Public Use
  Company Number: US-NOVEN-14US008910

PATIENT
  Age: 10 Year
  Sex: Female

DRUGS (3)
  1. DAYTRANA [Suspect]
     Indication: ATTENTION DEFICIT/HYPERACTIVITY DISORDER
     Dosage: 30 MG, QD X 9 HOURS
     Route: 062
     Dates: start: 2009
  2. CLONIDINE [Concomitant]
     Dosage: 0.3 MG, UNK
     Route: 048
     Dates: start: 2009
  3. ALBUTEROL                          /00139501/ [Concomitant]
     Indication: ASTHMA
     Dosage: 2.5 MG/3ML PRN
     Route: 055

REACTIONS (2)
  - Blood pressure increased [Recovering/Resolving]
  - Tachycardia [Recovering/Resolving]
